FAERS Safety Report 9412094 (Version 1)
Quarter: 2013Q2

REPORT INFORMATION
  Report Type: Spontaneous
  Country: US (occurrence: GB)
  Receive Date: 20130401
  Receipt Date: 20130401
  Transmission Date: 20140414
  Serious: Yes (Other)
  Sender: FDA-Public Use
  Company Number: 20080007

PATIENT
  Age: 39 Year
  Sex: Female

DRUGS (1)
  1. VENOFER [Suspect]
     Indication: IRON DEFICIENCY ANAEMIA
     Route: 058

REACTIONS (3)
  - Pancytopenia [None]
  - Marrow hyperplasia [None]
  - Megakaryocytes decreased [None]
